FAERS Safety Report 12681176 (Version 2)
Quarter: 2016Q3

REPORT INFORMATION
  Report Type: Spontaneous
  Country: US (occurrence: US)
  Receive Date: 20160824
  Receipt Date: 20160928
  Transmission Date: 20161109
  Serious: Yes (Hospitalization, Other)
  Sender: FDA-Public Use
  Company Number: US-SAOL THERAPEUTICS-2016SAO00449

PATIENT
  Sex: Female

DRUGS (8)
  1. BACLOFEN. [Suspect]
     Active Substance: BACLOFEN
     Indication: PAIN
     Dosage: 5.9 ?G, \DAY
     Route: 037
     Dates: start: 20160809
  2. MORPHINE [Suspect]
     Active Substance: MORPHINE
     Dosage: 0.015 ?G, \DAY
     Route: 037
     Dates: start: 20160809
  3. DILAUDID [Suspect]
     Active Substance: HYDROMORPHONE HYDROCHLORIDE
     Dosage: 0.089 MG, \DAY
     Route: 037
     Dates: start: 20160809
  4. BACLOFEN. [Suspect]
     Active Substance: BACLOFEN
     Indication: PAIN
     Dosage: 519.3 ?G, \DAY
     Route: 037
     Dates: start: 20160809
  5. CLONIDINE. [Suspect]
     Active Substance: CLONIDINE
     Dosage: 1.48 ?G, \DAY
     Route: 037
     Dates: start: 20160809
  6. CLONIDINE. [Suspect]
     Active Substance: CLONIDINE
     Dosage: 129.83 ?G, \DAY
     Route: 037
     Dates: start: 20160809
  7. MORPHINE [Suspect]
     Active Substance: MORPHINE
     Dosage: 12.983 MG, \DAY
     Route: 037
     Dates: start: 20160809
  8. DILAUDID [Suspect]
     Active Substance: HYDROMORPHONE HYDROCHLORIDE
     Dosage: 7.790 MG, \DAY
     Route: 037
     Dates: start: 20160809

REACTIONS (8)
  - Overdose [Unknown]
  - Lethargy [Unknown]
  - Seizure [Unknown]
  - Mental status changes [Unknown]
  - Encephalopathy [Unknown]
  - Decreased appetite [Unknown]
  - Off label use [Unknown]
  - Fall [Unknown]
